FAERS Safety Report 8551025-6 (Version None)
Quarter: 2012Q3

REPORT INFORMATION
  Report Type: 
  Country: None (occurrence: None)
  Receive Date: 20120723
  Receipt Date: 20120723
  Transmission Date: 20120928
  Serious: Yes (Hospitalization)
  Sender: FDA-Public Use
  Company Number: None

PATIENT
  Age: 76 Year
  Sex: Female
  Weight: 90.5 kg

DRUGS (3)
  1. XARELTO [Suspect]
     Indication: KNEE ARTHROPLASTY
     Dosage: 10 MG PO QDAY  PO, 2 DOSES
     Route: 048
     Dates: start: 20120709, end: 20120710
  2. XARELTO [Suspect]
     Indication: POSTOPERATIVE CARE
     Dosage: 10 MG PO QDAY  PO, 2 DOSES
     Route: 048
     Dates: start: 20120709, end: 20120710
  3. XARELTO [Suspect]
     Indication: THROMBOSIS PROPHYLAXIS
     Dosage: 10 MG PO QDAY  PO, 2 DOSES
     Route: 048
     Dates: start: 20120709, end: 20120710

REACTIONS (9)
  - URINE OUTPUT DECREASED [None]
  - THROMBOCYTOPENIA [None]
  - ASCITES [None]
  - INCISION SITE HAEMORRHAGE [None]
  - HEPATIC ENCEPHALOPATHY [None]
  - CARDIO-RESPIRATORY ARREST [None]
  - GENERAL PHYSICAL HEALTH DETERIORATION [None]
  - MOUTH HAEMORRHAGE [None]
  - POST PROCEDURAL COMPLICATION [None]
